FAERS Safety Report 9713460 (Version 1)
Quarter: 2013Q4

REPORT INFORMATION
  Report Type: Other
  Country: US (occurrence: US)
  Receive Date: 20131126
  Receipt Date: 20131126
  Transmission Date: 20140711
  Serious: Yes (Death)
  Sender: FDA-Public Use
  Company Number: US-SHIRE-ALL1-2013-08121

PATIENT
  Age: 80 Year
  Sex: Female

DRUGS (1)
  1. PENTASA [Suspect]
     Indication: PRODUCT USED FOR UNKNOWN INDICATION
     Dosage: 3000 MG (SIX 500 MG CAPSULES), UNKNOWN
     Route: 048
     Dates: end: 20131108

REACTIONS (1)
  - Death [Fatal]
